FAERS Safety Report 23667652 (Version 2)
Quarter: 2024Q2

REPORT INFORMATION
  Report Type: Spontaneous
  Country: FR (occurrence: FR)
  Receive Date: 20240325
  Receipt Date: 20240417
  Transmission Date: 20240715
  Serious: Yes (Other)
  Sender: FDA-Public Use
  Company Number: None

PATIENT
  Age: 72 Year
  Sex: Female
  Weight: 54 kg

DRUGS (4)
  1. RYBREVANT [Suspect]
     Active Substance: AMIVANTAMAB-VMJW
     Indication: Lung adenocarcinoma
     Dosage: 1050 MG 1 TIME PER CYCLE
     Route: 042
     Dates: start: 20240117, end: 20240117
  2. OSIMERTINIB [Concomitant]
     Active Substance: OSIMERTINIB
     Dates: start: 20221007, end: 20240109
  3. CARBOPLATIN [Concomitant]
     Active Substance: CARBOPLATIN
     Dates: start: 20240117
  4. PEMETREXED [Concomitant]
     Active Substance: PEMETREXED
     Dosage: OR 800 MG TOTAL DOSE ON PAC 350 MG
     Dates: start: 20240117

REACTIONS (1)
  - Type I hypersensitivity [Recovered/Resolved]

NARRATIVE: CASE EVENT DATE: 20240117
